FAERS Safety Report 11592235 (Version 3)
Quarter: 2016Q1

REPORT INFORMATION
  Report Type: Report from Study
  Country: US (occurrence: US)
  Receive Date: 20151005
  Receipt Date: 20160329
  Transmission Date: 20160525
  Serious: No
  Sender: FDA-Public Use
  Company Number: PHEH2015US019250

PATIENT
  Sex: Male
  Weight: 64.41 kg

DRUGS (2)
  1. GILENYA [Suspect]
     Active Substance: FINGOLIMOD HYDROCHLORIDE
     Indication: MULTIPLE SCLEROSIS
     Dosage: 0.5 MG, QD
     Route: 048
     Dates: start: 20150224
  2. GILENYA [Suspect]
     Active Substance: FINGOLIMOD HYDROCHLORIDE
     Dosage: 0.5 MG, QW4
     Route: 048

REACTIONS (3)
  - White blood cell count decreased [Not Recovered/Not Resolved]
  - Prescribed underdose [Unknown]
  - Multiple sclerosis relapse [Recovered/Resolved]
